FAERS Safety Report 9806997 (Version 4)
Quarter: 2014Q2

REPORT INFORMATION
  Report Type: Report from Study
  Country: CA (occurrence: CA)
  Receive Date: 20140109
  Receipt Date: 20140416
  Transmission Date: 20141212
  Serious: Yes (Hospitalization, Other)
  Sender: FDA-Public Use
  Company Number: CA-ROCHE-1330986

PATIENT
  Age: 51 Year
  Sex: Male
  Weight: 99.8 kg

DRUGS (10)
  1. AVASTIN [Suspect]
     Indication: GLIOBLASTOMA
     Route: 042
     Dates: start: 20131212, end: 20140320
  2. PANTOPRAZOLE [Concomitant]
  3. CLOBAZAM [Concomitant]
  4. KEPPRA [Concomitant]
  5. DILANTIN [Concomitant]
     Route: 065
     Dates: end: 20131120
  6. FRAGMIN [Concomitant]
  7. CEFTRIAXONE [Concomitant]
     Route: 042
     Dates: end: 20131121
  8. TEMODAL [Concomitant]
  9. DEXAMETHASONE [Concomitant]
  10. LORAZEPAM [Concomitant]

REACTIONS (8)
  - Malaise [Unknown]
  - Wound infection [Unknown]
  - Neutrophil count increased [Unknown]
  - Haemoglobin decreased [Unknown]
  - Haematocrit decreased [Unknown]
  - Red cell distribution width increased [Unknown]
  - Red blood cell count decreased [Unknown]
  - Disease progression [Unknown]
